FAERS Safety Report 7157239-4 (Version None)
Quarter: 2010Q4

REPORT INFORMATION
  Report Type: 
  Country: None (occurrence: None)
  Receive Date: 20101214
  Receipt Date: 20091211
  Transmission Date: 20110411
  Serious: No
  Sender: FDA-Public Use
  Company Number: US-ASTRAZENECA-2009SE31572

PATIENT
  Age: 75 Year
  Sex: Male
  Weight: 64.9 kg

DRUGS (5)
  1. CRESTOR [Suspect]
     Indication: BLOOD CHOLESTEROL INCREASED
     Route: 048
     Dates: start: 20070101
  2. CRESTOR [Suspect]
     Dosage: 10 MG ONE DAY AND 20 MG THE NEXT DAY
     Route: 048
  3. NIASPAN [Concomitant]
  4. VOLTAREN [Concomitant]
     Indication: BACK PAIN
  5. ASPIRIN [Concomitant]
     Indication: BACK PAIN

REACTIONS (5)
  - ARTHRALGIA [None]
  - ASTHENIA [None]
  - INAPPROPRIATE SCHEDULE OF DRUG ADMINISTRATION [None]
  - MYALGIA [None]
  - WEIGHT DECREASED [None]
